FAERS Safety Report 15394847 (Version 1)
Quarter: 2018Q3

REPORT INFORMATION
  Report Type: Spontaneous
  Country: GB (occurrence: GB)
  Receive Date: 20180918
  Receipt Date: 20180918
  Transmission Date: 20181010
  Serious: Yes (Hospitalization)
  Sender: FDA-Public Use
  Company Number: GB-CONCORDIA PHARMACEUTICALS INC.-E2B_00016704

PATIENT
  Age: 85 Year

DRUGS (9)
  1. FOLIC ACID. [Concomitant]
     Active Substance: FOLIC ACID
  2. MEMANTINE. [Concomitant]
     Active Substance: MEMANTINE
     Dosage: AT NIGHT
  3. AMLODIPINE [Concomitant]
     Active Substance: AMLODIPINE BESYLATE
  4. AMOXICILLIN. [Concomitant]
     Active Substance: AMOXICILLIN
  5. NUTRITIONAL SUPPLEMENT [Concomitant]
     Active Substance: DIETARY SUPPLEMENT
  6. ADCAL?D3 [Concomitant]
     Active Substance: CALCIUM CARBONATE\CHOLECALCIFEROL
     Dosage: 200UNIT
  7. LORAZEPAM. [Concomitant]
     Active Substance: LORAZEPAM
  8. PREDNISOLONE. [Suspect]
     Active Substance: PREDNISOLONE
  9. PARACETAMOL [Concomitant]
     Active Substance: ACETAMINOPHEN

REACTIONS (2)
  - Pneumonia aspiration [Unknown]
  - Gastrointestinal haemorrhage [Unknown]
